FAERS Safety Report 13845262 (Version 2)
Quarter: 2017Q3

REPORT INFORMATION
  Report Type: Spontaneous
  Country: US (occurrence: US)
  Receive Date: 20170808
  Receipt Date: 20170818
  Transmission Date: 20171127
  Serious: Yes (Other)
  Sender: FDA-Public Use
  Company Number: US-PFIZER INC-2017336885

PATIENT
  Age: 67 Year
  Sex: Female

DRUGS (1)
  1. FLUCONAZOLE. [Suspect]
     Active Substance: FLUCONAZOLE
     Dosage: UNK

REACTIONS (5)
  - Malaise [Unknown]
  - Dysphagia [Unknown]
  - Drug hypersensitivity [Unknown]
  - Nausea [Unknown]
  - Weight decreased [Unknown]
